FAERS Safety Report 4283002-8 (Version None)
Quarter: 2004Q1

REPORT INFORMATION
  Report Type: 
  Country: None (occurrence: None)
  Receive Date: 20040129
  Receipt Date: 20040122
  Transmission Date: 20041129
  Serious: Yes (Death)
  Sender: FDA-Public Use
  Company Number: US-JNJFOC-20031101459

PATIENT
  Age: 71 Year
  Sex: Male

DRUGS (1)
  1. DURAGESIC [Suspect]
     Indication: CANCER PAIN
     Dosage: TRANSDERMAL
     Route: 062
     Dates: end: 20031103

REACTIONS (1)
  - PANCREATIC CARCINOMA METASTATIC [None]
